FAERS Safety Report 17834623 (Version 1)
Quarter: 2020Q2

REPORT INFORMATION
  Report Type: Spontaneous
  Country: US (occurrence: US)
  Receive Date: 20200528
  Receipt Date: 20200528
  Transmission Date: 20200714
  Serious: Yes (Other)
  Sender: FDA-Public Use
  Company Number: None

PATIENT
  Age: 70 Year
  Sex: Female
  Weight: 76.3 kg

DRUGS (11)
  1. ACETAMINOPHEN. [Concomitant]
     Active Substance: ACETAMINOPHEN
     Dates: start: 20200423
  2. FENTANYL. [Concomitant]
     Active Substance: FENTANYL
     Dates: start: 20200523
  3. MEROPENEM. [Concomitant]
     Active Substance: MEROPENEM
     Dates: start: 20200524
  4. PHENYLEPHRINE [Concomitant]
     Active Substance: PHENYLEPHRINE HYDROCHLORIDE
     Dates: start: 20200524
  5. PROPOFOL. [Concomitant]
     Active Substance: PROPOFOL
     Dates: start: 20200525
  6. FUROSEMIDE. [Concomitant]
     Active Substance: FUROSEMIDE
     Dates: start: 20200523
  7. INSULIN [Concomitant]
     Active Substance: INSULIN NOS
     Dates: start: 20200424
  8. LORAZEPAM. [Concomitant]
     Active Substance: LORAZEPAM
     Dates: start: 20200521
  9. REMDESIVIR. [Suspect]
     Active Substance: REMDESIVIR
     Indication: COVID-19
     Route: 042
     Dates: start: 20200523, end: 20200527
  10. ENOXAPARIN [Concomitant]
     Active Substance: ENOXAPARIN
     Dates: start: 20200423
  11. LINEZOLID. [Concomitant]
     Active Substance: LINEZOLID
     Dates: start: 20200524

REACTIONS (1)
  - Transaminases increased [None]

NARRATIVE: CASE EVENT DATE: 20200528
